FAERS Safety Report 10583418 (Version 1)
Quarter: 2014Q4

REPORT INFORMATION
  Report Type: Spontaneous
  Country: GB (occurrence: None)
  Receive Date: 20141112
  Receipt Date: 20141112
  Transmission Date: 20150529
  Serious: Yes (Death)
  Sender: FDA-Public Use
  Company Number: AMAG201400401

PATIENT

DRUGS (2)
  1. BUSCOPAN (HYOSCINE BUTYLBROMIDE) (HYOSCINE BUTYLBROMIDE) [Concomitant]
     Active Substance: BUTYLSCOPOLAMINE
  2. RIENSO (FERUMOXYTOL) INJECTION [Suspect]
     Active Substance: FERUMOXYTOL
     Dosage: SINGLE
     Route: 042
     Dates: start: 20140410, end: 20140410

REACTIONS (1)
  - Oesophageal cancer metastatic [None]

NARRATIVE: CASE EVENT DATE: 20140610
